FAERS Safety Report 8450222-8 (Version None)
Quarter: 2012Q2

REPORT INFORMATION
  Report Type: 
  Country: None (occurrence: None)
  Receive Date: 20120620
  Receipt Date: 20120607
  Transmission Date: 20120825
  Serious: Yes (Hospitalization)
  Sender: FDA-Public Use
  Company Number: US-VERTEX PHARMACEUTICALS INC.-AE-2012-008653

PATIENT
  Sex: Female

DRUGS (3)
  1. RIBAVIRIN [Concomitant]
     Indication: HEPATITIS C
     Dates: start: 20120410
  2. PEGASYS [Concomitant]
     Indication: HEPATITIS C
     Dates: start: 20120410
  3. INCIVEK [Suspect]
     Indication: HEPATITIS C
     Route: 048
     Dates: start: 20120410

REACTIONS (10)
  - NAUSEA [None]
  - STOMATITIS [None]
  - DIARRHOEA [None]
  - ANAEMIA [None]
  - FATIGUE [None]
  - WHITE BLOOD CELL COUNT DECREASED [None]
  - RASH [None]
  - WEIGHT DECREASED [None]
  - DRY SKIN [None]
  - VOMITING [None]
